FAERS Safety Report 5495573-4 (Version None)
Quarter: 2007Q4

REPORT INFORMATION
  Report Type: 
  Country: None (occurrence: None)
  Receive Date: 20071025
  Receipt Date: 20071016
  Transmission Date: 20080405
  Serious: Yes (Other)
  Sender: FDA-Public Use
  Company Number: PHBS2007BR17336

PATIENT
  Age: 62 Year
  Sex: Female

DRUGS (4)
  1. LEPONEX [Suspect]
     Indication: BIPOLAR DISORDER
  2. RIVASTIGMINE [Suspect]
     Dosage: 4.5 MG/DAY
  3. LORAZEPAM [Concomitant]
  4. LEVOTHYROXINE SODIUM [Concomitant]

REACTIONS (1)
  - NEUTROPHIL COUNT DECREASED [None]
